FAERS Safety Report 7222292-6 (Version None)
Quarter: 2011Q1

REPORT INFORMATION
  Report Type: 
  Country: None (occurrence: None)
  Receive Date: 20110112
  Receipt Date: 20110111
  Transmission Date: 20110831
  Serious: Yes (Hospitalization)
  Sender: FDA-Public Use
  Company Number: US-BRISTOL-MYERS SQUIBB COMPANY-15480213

PATIENT
  Sex: Male

DRUGS (4)
  1. SUBOXONE [Concomitant]
     Indication: DRUG DEPENDENCE
  2. ABILIFY [Suspect]
     Dosage: 2MG FOR TWO WEEKS, THEN 7MG FOR A COUPLE OF WEEKS
  3. ASPIRIN [Concomitant]
  4. FISH OIL [Concomitant]

REACTIONS (2)
  - HEART VALVE OPERATION [None]
  - DRUG INEFFECTIVE [None]
